FAERS Safety Report 9661415 (Version 1)
Quarter: 2013Q4

REPORT INFORMATION
  Report Type: Spontaneous
  Country: US (occurrence: US)
  Receive Date: 20131031
  Receipt Date: 20131031
  Transmission Date: 20140711
  Serious: No
  Sender: FDA-Public Use
  Company Number: US-PURDUE-USA-2010-0052113

PATIENT
  Age: 65 Year
  Sex: Female

DRUGS (2)
  1. OXYCONTIN (NDA 22-272) [Suspect]
     Indication: CANCER PAIN
     Dosage: 80 MG, TID
  2. MORPHINE SULFATE (SIMILAR TO NDA 19-516) [Concomitant]
     Indication: CANCER PAIN
     Dosage: UNK

REACTIONS (1)
  - Drug effect decreased [Unknown]
